FAERS Safety Report 9383935 (Version 2)
Quarter: 2014Q1

REPORT INFORMATION
  Report Type: Report from Study
  Country: CA (occurrence: CA)
  Receive Date: 20130705
  Receipt Date: 20140310
  Transmission Date: 20141002
  Serious: Yes (Other)
  Sender: FDA-Public Use
  Company Number: CA-ROCHE-1244616

PATIENT
  Age: 59 Year
  Sex: Female
  Weight: 105.2 kg

DRUGS (10)
  1. RITUXAN [Suspect]
     Indication: RHEUMATOID ARTHRITIS
     Dosage: 17/SEP/2013, SHE RECEIVED THE LAST DOSE
     Route: 042
     Dates: start: 20130110
  2. DIPHENHYDRAMINE HCL [Concomitant]
     Indication: PREMEDICATION
     Route: 048
     Dates: start: 20130110
  3. ACETAMINOPHEN [Concomitant]
     Indication: PREMEDICATION
     Route: 048
     Dates: start: 20130110
  4. METHYLPREDNISOLONE [Concomitant]
     Indication: PREMEDICATION
     Route: 042
     Dates: start: 20130110
  5. VICTOZA [Concomitant]
  6. HYDRODIURIL [Concomitant]
  7. ATACAND [Concomitant]
  8. PREDNISONE [Concomitant]
  9. ZOPICLONE [Concomitant]
     Route: 065
  10. CALTRATE [Concomitant]

REACTIONS (3)
  - Diabetes mellitus inadequate control [Unknown]
  - Blood cholesterol increased [Unknown]
  - Weight decreased [Not Recovered/Not Resolved]
